FAERS Safety Report 8519927 (Version 2)
Quarter: 2012Q4

REPORT INFORMATION
  Report Type: 
  Country: US (occurrence: US)
  Receive Date: 20120418
  Receipt Date: 20121120
  Transmission Date: 20130627
  Serious: No
  Sender: FDA-Public Use
  Company Number: US-ASTRAZENECA-2011SE41541

PATIENT
  Age: 49 Year
  Sex: Female

DRUGS (5)
  1. NEXIUM [Suspect]
     Indication: GASTROOESOPHAGEAL REFLUX DISEASE
     Route: 048
     Dates: start: 20080901
  2. TUMS [Concomitant]
     Dosage: AS NEEDED
  3. ROLAIDS [Concomitant]
     Dosage: AS NEEDED
  4. ALENDRONATE [Concomitant]
     Indication: OSTEOPOROSIS
  5. GABAPENTIN [Concomitant]
     Indication: PAIN

REACTIONS (5)
  - Osteoporosis [Unknown]
  - Bone disorder [Unknown]
  - Bone density decreased [Unknown]
  - Emotional distress [Unknown]
  - Fracture [Unknown]
